FAERS Safety Report 5079921-5 (Version None)
Quarter: 2006Q3

REPORT INFORMATION
  Report Type: 
  Country: None (occurrence: None)
  Receive Date: 20060815
  Receipt Date: 20060616
  Transmission Date: 20061208
  Serious: Yes (Death, Hospitalization)
  Sender: FDA-Public Use
  Company Number: NLWYE743019JUN06

PATIENT
  Sex: Female

DRUGS (1)
  1. ENBREL [Suspect]
     Indication: PSORIASIS
     Route: 065
     Dates: start: 20051201, end: 20060101

REACTIONS (8)
  - ANASTOMOTIC LEAK [None]
  - ARRHYTHMIA [None]
  - CARDIAC DISORDER [None]
  - CARDIOMEGALY [None]
  - CARDIOMYOPATHY [None]
  - MALAISE [None]
  - METASTASES TO LYMPH NODES [None]
  - SMALL INTESTINE CARCINOMA METASTATIC [None]
